FAERS Safety Report 4448736-0 (Version None)
Quarter: 2004Q3

REPORT INFORMATION
  Report Type: 
  Country: None (occurrence: None)
  Receive Date: 20040909
  Receipt Date: 20040903
  Transmission Date: 20050211
  Serious: Yes (Disabling)
  Sender: FDA-Public Use
  Company Number: TPG2004A00225

PATIENT
  Age: 79 Year
  Sex: Male

DRUGS (5)
  1. AGOPTON (LANSOPRAZOLE) (15 MILLIGRAM, CAPSULES) [Suspect]
     Indication: GASTROOESOPHAGEAL REFLUX DISEASE
     Dosage: 15 MG (15 MG, 1 IN 1 D), PER ORAL
     Route: 048
  2. SINTROM [Suspect]
     Indication: ANTICOAGULANT THERAPY
     Dosage: SINCE YEARS
  3. AMARYL (GLIMPERIDE) (TABELTS) [Concomitant]
  4. BELOC ZOK (METOPROLOL SUCCINATE ) (TABLETS) [Concomitant]
  5. PRAVASTATIN SODIUM [Concomitant]

REACTIONS (2)
  - DRUG INTERACTION [None]
  - PROTHROMBIN LEVEL DECREASED [None]
